FAERS Safety Report 18678613 (Version 2)
Quarter: 2021Q1

REPORT INFORMATION
  Report Type: Spontaneous
  Country: US (occurrence: US)
  Receive Date: 20201230
  Receipt Date: 20210111
  Transmission Date: 20210419
  Serious: No
  Sender: FDA-Public Use
  Company Number: US-MACLEODS PHARMACEUTICALS US LTD-MAC2020029595

PATIENT

DRUGS (13)
  1. OLANZAPINE 2.5MG TABLET [Suspect]
     Active Substance: OLANZAPINE
     Dosage: 3 DOSAGE FORM, QD, 1 TABLET AT EVERY MORNING AND 2 TABLETS AT BEDTIME
     Route: 048
     Dates: start: 2020, end: 2020
  2. OLANZAPINE 2.5MG TABLET [Suspect]
     Active Substance: OLANZAPINE
     Dosage: 3 DOSAGE FORM, QD, 1 TABLET AT EVERY MORNING AND 2 TABLETS AT BEDTIME
     Route: 048
     Dates: start: 2020, end: 2020
  3. LAMOTRIGINE. [Concomitant]
     Active Substance: LAMOTRIGINE
     Indication: PRODUCT USED FOR UNKNOWN INDICATION
     Dosage: UNK
     Route: 065
  4. OLANZAPINE 2.5MG TABLET [Suspect]
     Active Substance: OLANZAPINE
     Dosage: 3 DOSAGE FORM, QD, 1 TABLET AT EVERY MORNING AND 2 TABLETS AT BEDTIME
     Route: 048
     Dates: start: 2020, end: 2020
  5. BUSPIRONE [Concomitant]
     Active Substance: BUSPIRONE HYDROCHLORIDE
     Indication: PRODUCT USED FOR UNKNOWN INDICATION
     Dosage: UNK
     Route: 065
  6. QUETIAPINE. [Concomitant]
     Active Substance: QUETIAPINE
     Indication: PRODUCT USED FOR UNKNOWN INDICATION
     Dosage: UNK
     Route: 065
  7. ESCITALOPRAM [Concomitant]
     Active Substance: ESCITALOPRAM OXALATE
     Indication: PRODUCT USED FOR UNKNOWN INDICATION
     Dosage: UNK
     Route: 065
  8. FLUOXETINE [Concomitant]
     Active Substance: FLUOXETINE HYDROCHLORIDE
     Indication: PRODUCT USED FOR UNKNOWN INDICATION
     Dosage: UNK
     Route: 065
  9. OLANZAPINE 2.5MG TABLET [Suspect]
     Active Substance: OLANZAPINE
     Dosage: 3 DOSAGE FORM, QD, 1 TABLET AT EVERY MORNING AND 2 TABLETS AT BEDTIME
     Route: 048
     Dates: start: 20201128, end: 20201202
  10. CLONAZEPAM. [Concomitant]
     Active Substance: CLONAZEPAM
     Indication: PRODUCT USED FOR UNKNOWN INDICATION
     Dosage: UNK
     Route: 065
  11. OLANZAPINE 2.5MG TABLET [Suspect]
     Active Substance: OLANZAPINE
     Indication: ANXIETY
     Dosage: 3 DOSAGE FORM, QD, 1 TABLET AT EVERY MORNING AND 2 TABLETS AT BEDTIME
     Route: 048
     Dates: start: 2020, end: 2020
  12. DEXTROAMPHETAMINE. [Concomitant]
     Active Substance: DEXTROAMPHETAMINE
     Indication: PRODUCT USED FOR UNKNOWN INDICATION
     Dosage: UNK
     Route: 065
  13. OLANZAPINE 2.5MG TABLET [Suspect]
     Active Substance: OLANZAPINE
     Dosage: 3 DOSAGE FORM, QD, 1 TABLET AT EVERY MORNING AND 2 TABLETS AT BEDTIME, BATCH NUMBER: BOB191A* (INVAL
     Route: 048
     Dates: start: 2020, end: 2020

REACTIONS (5)
  - Anxiety [Unknown]
  - Depressed mood [Unknown]
  - Mania [Unknown]
  - Drug ineffective [Unknown]
  - Product quality issue [Unknown]
